FAERS Safety Report 4868914-6 (Version None)
Quarter: 2005Q4

REPORT INFORMATION
  Report Type: 
  Country: None (occurrence: None)
  Receive Date: 20051229
  Receipt Date: 20051219
  Transmission Date: 20060501
  Serious: Yes (Hospitalization, Disabling)
  Sender: FDA-Public Use
  Company Number: US-MERCK-0512USA03182

PATIENT
  Age: 59 Year
  Sex: Male
  Weight: 105 kg

DRUGS (4)
  1. VIOXX [Suspect]
     Indication: PAIN IN EXTREMITY
     Route: 048
     Dates: start: 20010411, end: 20020626
  2. AMARYL [Concomitant]
     Indication: DIABETES MELLITUS
     Route: 065
  3. AMOXICILLIN [Concomitant]
     Indication: BACTERIAL INFECTION
     Route: 065
  4. HYDROCODONE BITARTRATE [Concomitant]
     Indication: TOOTHACHE
     Route: 065
     Dates: start: 20011128, end: 20011201

REACTIONS (4)
  - CARDIAC DISORDER [None]
  - CARDIAC FAILURE CONGESTIVE [None]
  - DIARRHOEA [None]
  - MYOCARDIAL INFARCTION [None]
